FAERS Safety Report 9057228 (Version 1)
Quarter: 2013Q1

REPORT INFORMATION
  Report Type: Spontaneous
  Country: US (occurrence: US)
  Receive Date: 20130131
  Receipt Date: 20130131
  Transmission Date: 20140127
  Serious: Yes (Hospitalization)
  Sender: FDA-Public Use
  Company Number: US-GLAXOSMITHKLINE-A1009648A

PATIENT
  Age: 73 Year
  Sex: Female

DRUGS (13)
  1. ADVAIR [Suspect]
     Indication: CHRONIC OBSTRUCTIVE PULMONARY DISEASE
     Dosage: 1PUFF TWICE PER DAY
     Route: 055
     Dates: start: 201208
  2. HYDRALAZINE [Concomitant]
  3. CLARITIN [Concomitant]
  4. LEVOTHYROXINE [Concomitant]
  5. OMEPRAZOLE [Concomitant]
  6. LATANOPROST [Concomitant]
  7. PILOCARPINE [Concomitant]
  8. TIMOLOL [Concomitant]
  9. KETOROLAC [Concomitant]
  10. CALTRATE WITH VITAMIN D [Concomitant]
  11. ASPIRIN [Concomitant]
  12. GLUCOSAMINE + CHONDROITIN [Concomitant]
  13. DECONGESTANT [Concomitant]

REACTIONS (14)
  - Dizziness [Unknown]
  - Fall [Unknown]
  - Fractured coccyx [Unknown]
  - Laceration [Unknown]
  - Pain [Recovering/Resolving]
  - Bronchitis [Unknown]
  - Weight decreased [Unknown]
  - Decreased appetite [Unknown]
  - Asthenia [Unknown]
  - Dehydration [Unknown]
  - Blood sodium decreased [Unknown]
  - General physical health deterioration [Unknown]
  - Sinusitis [Unknown]
  - Oropharyngeal pain [Unknown]
